FAERS Safety Report 7687350-0 (Version None)
Quarter: 2011Q3

REPORT INFORMATION
  Report Type: 
  Country: None (occurrence: None)
  Receive Date: 20110816
  Receipt Date: 20110809
  Transmission Date: 20111222
  Serious: Yes (Hospitalization)
  Sender: FDA-Public Use
  Company Number: JP-ABBOTT-11P-087-0845683-00

PATIENT
  Age: 22 Year
  Sex: Female

DRUGS (1)
  1. LEUPROLIDE ACETATE [Suspect]
     Indication: HAEMORRHAGE PROPHYLAXIS
     Route: 058

REACTIONS (1)
  - STEVENS-JOHNSON SYNDROME [None]
